FAERS Safety Report 10468501 (Version 4)
Quarter: 2016Q1

REPORT INFORMATION
  Report Type: Report from Study
  Country: IL (occurrence: IL)
  Receive Date: 20140922
  Receipt Date: 20160215
  Transmission Date: 20160525
  Serious: Yes (Other)
  Sender: FDA-Public Use
  Company Number: PHHY2014IL028784

PATIENT
  Age: 69 Year
  Sex: Male
  Weight: 90 kg

DRUGS (1)
  1. TASIGNA [Suspect]
     Active Substance: NILOTINIB
     Indication: CHRONIC MYELOID LEUKAEMIA
     Dosage: 300 MG, BID
     Route: 048
     Dates: start: 201306

REACTIONS (3)
  - Diabetic retinopathy [Not Recovered/Not Resolved]
  - Visual impairment [Not Recovered/Not Resolved]
  - Eye oedema [Not Recovered/Not Resolved]

NARRATIVE: CASE EVENT DATE: 20140116
